FAERS Safety Report 24254308 (Version 1)
Quarter: 2024Q3

REPORT INFORMATION
  Report Type: Spontaneous
  Country: ES (occurrence: ES)
  Receive Date: 20240827
  Receipt Date: 20240827
  Transmission Date: 20241016
  Serious: Yes (Life-Threatening, Hospitalization)
  Sender: TEVA
  Company Number: None

PATIENT
  Age: 58 Year
  Sex: Female

DRUGS (3)
  1. CARBOPLATIN [Suspect]
     Active Substance: CARBOPLATIN
     Indication: Lung neoplasm malignant
     Dosage: CARBOPLATIN (2323A)
     Route: 042
     Dates: start: 20240625, end: 20240627
  2. ETOPOSIDE [Suspect]
     Active Substance: ETOPOSIDE
     Indication: Lung neoplasm malignant
     Dosage: ETOPOSIDE (518A)
     Route: 042
     Dates: start: 20240625, end: 20240627
  3. ATEZOLIZUMAB [Suspect]
     Active Substance: ATEZOLIZUMAB
     Indication: Lung neoplasm malignant
     Dosage: ATEZOLIZUMAB (9268A)
     Route: 042
     Dates: start: 20240625, end: 20240627

REACTIONS (3)
  - Pancytopenia [Recovered/Resolved]
  - Gastrointestinal haemorrhage [Recovered/Resolved]
  - Endocarditis [Recovered/Resolved]

NARRATIVE: CASE EVENT DATE: 20240711
